FAERS Safety Report 8460975-0 (Version None)
Quarter: 2012Q2

REPORT INFORMATION
  Report Type: 
  Country: None (occurrence: None)
  Receive Date: 20120625
  Receipt Date: 20120613
  Transmission Date: 20120825
  Serious: No
  Sender: FDA-Public Use
  Company Number: US-BIOGENIDEC-2012BI021069

PATIENT
  Sex: Female

DRUGS (6)
  1. TYSABRI [Suspect]
     Indication: MULTIPLE SCLEROSIS
     Route: 042
     Dates: start: 20110701
  2. GABAPENTIN [Concomitant]
     Indication: HYPOAESTHESIA
  3. CYCLOBENZAPRINE [Concomitant]
     Indication: GAIT DISTURBANCE
  4. GABAPENTIN [Concomitant]
     Indication: MUSCLE SPASMS
  5. BACLOFEN [Concomitant]
     Indication: HYPOAESTHESIA
  6. BACLOFEN [Concomitant]
     Indication: MUSCLE SPASMS

REACTIONS (4)
  - ARTHRALGIA [None]
  - ASTIGMATISM [None]
  - MUSCLE SPASMS [None]
  - HYPOAESTHESIA [None]
